FAERS Safety Report 8846774 (Version 2)
Quarter: 2012Q4

REPORT INFORMATION
  Report Type: 
  Country: US (occurrence: US)
  Receive Date: 20121018
  Receipt Date: 20121214
  Transmission Date: 20130627
  Serious: No
  Sender: FDA-Public Use
  Company Number: US-PFIZER INC-2012257015

PATIENT
  Age: 79 Year
  Sex: Male
  Weight: 82.99 kg

DRUGS (6)
  1. LYRICA [Suspect]
     Indication: NEUROPATHY
     Dosage: 75 mg, 2x/day
     Route: 048
     Dates: start: 201109, end: 2012
  2. LYRICA [Suspect]
     Indication: TINGLING OF EXTREMITY
     Dosage: 75 mg, 1x/day
     Route: 048
     Dates: start: 2012
  3. LYRICA [Suspect]
     Indication: COCCYDYNIA
     Dosage: 75 mg, 2x/day
     Route: 048
     Dates: start: 20111031
  4. TAMSULOSIN [Concomitant]
     Dosage: UNK
  5. TYLENOL [Concomitant]
     Dosage: UNK
  6. CELEBREX [Concomitant]
     Dosage: UNK

REACTIONS (6)
  - Body height decreased [Unknown]
  - Oedema peripheral [Unknown]
  - Muscular weakness [Unknown]
  - Erythema [Unknown]
  - Paraesthesia [Unknown]
  - Bone pain [Unknown]
